FAERS Safety Report 18990033 (Version 1)
Quarter: 2021Q1

REPORT INFORMATION
  Report Type: Spontaneous
  Country: US (occurrence: US)
  Receive Date: 20210310
  Receipt Date: 20210310
  Transmission Date: 20210420
  Serious: No
  Sender: FDA-Public Use
  Company Number: US-GLENMARK PHARMACEUTICALS-2020GMK050210

PATIENT

DRUGS (2)
  1. LEVOCETIRIZINE DIHYDROCHLORIDE TABLETS, 5MG [Suspect]
     Active Substance: LEVOCETIRIZINE DIHYDROCHLORIDE
     Indication: ASTHMA
     Dosage: UNK
     Route: 048
  2. LEVOCETIRIZINE DIHYDROCHLORIDE TABLETS, 5MG [Suspect]
     Active Substance: LEVOCETIRIZINE DIHYDROCHLORIDE
     Dosage: UNK (PATIENT TOOK PRODUCT AGAIN AND HAD ADVERSE EVENT AGAIN)
     Route: 048
     Dates: start: 20201023

REACTIONS (3)
  - Abdominal distension [Not Recovered/Not Resolved]
  - Product use in unapproved indication [Unknown]
  - Allergic reaction to excipient [Not Recovered/Not Resolved]
